FAERS Safety Report 25113244 (Version 3)
Quarter: 2025Q2

REPORT INFORMATION
  Report Type: Spontaneous
  Country: US (occurrence: US)
  Receive Date: 20250324
  Receipt Date: 20250618
  Transmission Date: 20250717
  Serious: No
  Sender: UCB
  Company Number: US-UCBSA-2025004079

PATIENT
  Sex: Male
  Weight: 100 kg

DRUGS (1)
  1. BIMZELX [Suspect]
     Active Substance: BIMEKIZUMAB-BKZX
     Indication: Product used for unknown indication
     Dosage: UNK UNK, EV 4 WEEKS
     Route: 058

REACTIONS (2)
  - Psoriasis [Unknown]
  - Candida infection [Unknown]
